FAERS Safety Report 12549196 (Version 1)
Quarter: 2016Q3

REPORT INFORMATION
  Report Type: Report from Study
  Country: BR (occurrence: BR)
  Receive Date: 20160712
  Receipt Date: 20160712
  Transmission Date: 20161109
  Serious: Yes (Hospitalization, Other)
  Sender: FDA-Public Use
  Company Number: PHHY2016BR093398

PATIENT
  Sex: Female

DRUGS (1)
  1. SEEBRI BREEZHALER [Suspect]
     Active Substance: GLYCOPYRROLATE
     Indication: LUNG DISORDER
     Dosage: 1 DF (50 UG), QD (IN THE MORNING)
     Route: 055
     Dates: start: 20160527

REACTIONS (3)
  - Product use issue [Unknown]
  - Haematochezia [Unknown]
  - Gastrointestinal disorder [Unknown]
